FAERS Safety Report 22001151 (Version 1)
Quarter: 2023Q1

REPORT INFORMATION
  Report Type: Spontaneous
  Country: US (occurrence: US)
  Receive Date: 20230216
  Receipt Date: 20230216
  Transmission Date: 20230418
  Serious: Yes (Hospitalization)
  Sender: FDA-Public Use
  Company Number: US-AMNEAL PHARMACEUTICALS-2022-AMRX-02740

PATIENT
  Sex: Female
  Weight: 12.698 kg

DRUGS (4)
  1. VIGABATRIN [Suspect]
     Active Substance: VIGABATRIN
     Indication: Epilepsy
     Dosage: MIX 2 PACKETS IN 20 ML OF WATER AND TAKE 14.5ML TWICE DAILY
     Route: 048
  2. VIGABATRIN [Suspect]
     Active Substance: VIGABATRIN
     Dosage: 725 MILLIGRAM, BID
     Route: 048
  3. VIGABATRIN [Suspect]
     Active Substance: VIGABATRIN
     Dosage: 500 MG POWDER
     Route: 048
  4. VIGABATRIN [Suspect]
     Active Substance: VIGABATRIN
     Dosage: 900 MG MIX 2 PACKET IN 20 ML OF WATER AND GIVE 18 ML, 2/DAY
     Route: 048

REACTIONS (5)
  - Adverse event [Unknown]
  - Gastric infection [Unknown]
  - Diarrhoea [Unknown]
  - Pyrexia [Unknown]
  - Vomiting [Unknown]
